FAERS Safety Report 14190825 (Version 6)
Quarter: 2019Q2

REPORT INFORMATION
  Report Type: Spontaneous
  Country: CA (occurrence: CA)
  Receive Date: 20171115
  Receipt Date: 20190624
  Transmission Date: 20190711
  Serious: Yes (Other)
  Sender: FDA-Public Use
  Company Number: CA-PFIZER INC-2017490362

PATIENT
  Age: 57 Year
  Sex: Female

DRUGS (14)
  1. XELJANZ [Concomitant]
     Active Substance: TOFACITINIB CITRATE
     Dosage: UNK
     Route: 065
  2. ACTEMRA [Suspect]
     Active Substance: TOCILIZUMAB
     Dosage: UNK
  3. APO-HYDROXYQUINE [Suspect]
     Active Substance: HYDROXYCHLOROQUINE SULFATE
     Indication: RHEUMATOID ARTHRITIS
     Dosage: 200 MG, BID
     Route: 048
  4. HUMIRA [Suspect]
     Active Substance: ADALIMUMAB
     Dosage: 40 MG, UNK
     Route: 058
  5. HYDROXYCHLOROQUINE [Suspect]
     Active Substance: HYDROXYCHLOROQUINE
     Indication: RHEUMATOID ARTHRITIS
     Dosage: 200 MILLIGRAM, BID
     Route: 048
  6. RITUXAN [Suspect]
     Active Substance: RITUXIMAB
     Dosage: UNK
     Route: 042
  7. FOLIC ACID. [Concomitant]
     Active Substance: FOLIC ACID
     Dosage: UNK
  8. ENBREL [Suspect]
     Active Substance: ETANERCEPT
     Indication: RHEUMATOID ARTHRITIS
     Dosage: 50 MG, UNK
     Route: 058
  9. SULFASALAZINE. [Suspect]
     Active Substance: SULFASALAZINE
     Indication: RHEUMATOID ARTHRITIS
     Dosage: 1000 MILLIGRAM, BID
     Route: 048
  10. HYDROXYCHLOROQUINE [Suspect]
     Active Substance: HYDROXYCHLOROQUINE
     Dosage: UNK
     Route: 065
  11. PREDNISONE. [Concomitant]
     Active Substance: PREDNISONE
     Dosage: UNK
     Route: 065
  12. RESTASIS [Concomitant]
     Active Substance: CYCLOSPORINE
     Dosage: UNK
     Route: 065
  13. SYNTHROID [Concomitant]
     Active Substance: LEVOTHYROXINE SODIUM
     Dosage: UNK
     Route: 065
  14. METHOTREXATE SODIUM. [Suspect]
     Active Substance: METHOTREXATE SODIUM
     Indication: RHEUMATOID ARTHRITIS
     Dosage: 25 MILLIGRAM, QWK
     Route: 048

REACTIONS (9)
  - Hypothyroidism [Unknown]
  - Rheumatoid arthritis [Unknown]
  - Drug ineffective [Unknown]
  - Injury [Unknown]
  - Malignant melanoma [Unknown]
  - Herpes zoster [Unknown]
  - Product dose omission [Unknown]
  - Emotional disorder [Unknown]
  - Inappropriate schedule of product administration [Unknown]
